FAERS Safety Report 14453888 (Version 1)
Quarter: 2018Q1

REPORT INFORMATION
  Report Type: Spontaneous
  Country: US (occurrence: US)
  Receive Date: 20180129
  Receipt Date: 20180129
  Transmission Date: 20180509
  Serious: No
  Sender: FDA-Public Use
  Company Number: US-PFIZER INC-2018034713

PATIENT
  Age: 47 Year
  Sex: Female

DRUGS (1)
  1. NORVASC [Suspect]
     Active Substance: AMLODIPINE BESYLATE
     Indication: ANGINA PECTORIS
     Dosage: 10 MG, 1X/DAY
     Route: 048

REACTIONS (6)
  - Drug hypersensitivity [Not Recovered/Not Resolved]
  - Arterial occlusive disease [Recovering/Resolving]
  - Electrocardiogram abnormal [Recovered/Resolved]
  - Neuropathy peripheral [Unknown]
  - Back injury [Not Recovered/Not Resolved]
  - Sinus disorder [Not Recovered/Not Resolved]

NARRATIVE: CASE EVENT DATE: 2002
